FAERS Safety Report 9816794 (Version 1)
Quarter: 2014Q1

REPORT INFORMATION
  Report Type: Spontaneous
  Country: US (occurrence: US)
  Receive Date: 20140114
  Receipt Date: 20140114
  Transmission Date: 20141002
  Serious: No
  Sender: FDA-Public Use
  Company Number: US-ENDO PHARMACEUTICALS INC.-PERC20130061

PATIENT
  Sex: Female

DRUGS (6)
  1. PERCOCET [Suspect]
     Indication: PAIN
     Dosage: UNKNOWN
     Route: 048
     Dates: end: 20130402
  2. PERCOCET [Suspect]
     Indication: SPINAL CORD INJURY
  3. MOTRIN [Suspect]
     Indication: PAIN
     Dosage: UNKNOWN
     Route: 048
     Dates: end: 20130402
  4. MOTRIN [Suspect]
     Indication: SPINAL CORD INJURY
  5. MOBIC [Suspect]
     Indication: PAIN
     Dosage: UNKNOWN
     Route: 048
     Dates: end: 20130402
  6. MOBIC [Suspect]
     Indication: SPINAL CORD INJURY

REACTIONS (1)
  - Hepatic enzyme abnormal [Recovering/Resolving]
